FAERS Safety Report 13607726 (Version 2)
Quarter: 2017Q2

REPORT INFORMATION
  Report Type: Spontaneous
  Country: US (occurrence: US)
  Receive Date: 20170602
  Receipt Date: 20170615
  Transmission Date: 20170830
  Serious: Yes (Other)
  Sender: FDA-Public Use
  Company Number: US-AMGEN-USASP2017075567

PATIENT
  Age: 75 Year
  Sex: Male
  Weight: 113.3 kg

DRUGS (13)
  1. NPLATE [Suspect]
     Active Substance: ROMIPLOSTIM
     Dosage: 5 MCG, QWK
     Route: 058
     Dates: start: 20170322
  2. NPLATE [Suspect]
     Active Substance: ROMIPLOSTIM
     Indication: IMMUNE THROMBOCYTOPENIC PURPURA
     Dosage: 4 MCG, QWK
     Route: 058
     Dates: start: 20151008
  3. LOSARTAN POTASSIUM. [Concomitant]
     Active Substance: LOSARTAN POTASSIUM
     Dosage: 100 MG, QD
  4. NPLATE [Suspect]
     Active Substance: ROMIPLOSTIM
     Dosage: 7 MCG/KG, QWK
     Route: 058
     Dates: start: 20170517
  5. MELATONIN [Concomitant]
     Active Substance: MELATONIN
     Dosage: 5 MG, QHS
  6. OMEGA 3 [Concomitant]
     Active Substance: OMEGA-3 FATTY ACIDS
     Dosage: 684-1200 MG, QD
  7. PRAVASTATIN SODIUM. [Concomitant]
     Active Substance: PRAVASTATIN SODIUM
     Dosage: 40 MG, QHS
  8. VITAMIN C [Concomitant]
     Active Substance: ASCORBIC ACID
     Dosage: 500 MG, BID
  9. NPLATE [Suspect]
     Active Substance: ROMIPLOSTIM
     Dosage: 6 MCG/KG, QWK
     Route: 058
     Dates: start: 20170503
  10. POTASSIUM GLUCONATE [Concomitant]
     Active Substance: POTASSIUM GLUCONATE
     Dosage: 500 MG, QD
  11. TYLENOL [Concomitant]
     Active Substance: ACETAMINOPHEN
     Dosage: 500 MG, QHS
  12. VITAMIN D3 [Concomitant]
     Active Substance: CHOLECALCIFEROL
     Dosage: 1000 UNIT, QD
  13. VITAMIN K2 [Concomitant]
     Active Substance: MENAQUINONE 6
     Dosage: 40 MUG, BID

REACTIONS (7)
  - White blood cell count decreased [Unknown]
  - Haemoglobin decreased [Unknown]
  - Haematocrit decreased [Unknown]
  - Drug effect decreased [Unknown]
  - Eosinophil count increased [Unknown]
  - Red blood cell count decreased [Unknown]
  - Platelet count decreased [Not Recovered/Not Resolved]

NARRATIVE: CASE EVENT DATE: 20170502
